FAERS Safety Report 25214970 (Version 1)
Quarter: 2025Q2

REPORT INFORMATION
  Report Type: Spontaneous
  Country: US (occurrence: None)
  Receive Date: 20250418
  Receipt Date: 20250418
  Transmission Date: 20250716
  Serious: Yes (Hospitalization)
  Sender: FDA-CTU
  Company Number: None

PATIENT
  Age: 21 Year
  Sex: Female
  Weight: 80.1 kg

DRUGS (2)
  1. GAMMAGARD [Suspect]
     Active Substance: HUMAN IMMUNOGLOBULIN G
     Indication: Immunodeficiency common variable
     Route: 042
     Dates: start: 20250212
  2. Acetaminophen 500 mg by mouth [Concomitant]

REACTIONS (7)
  - Infusion related reaction [None]
  - Tremor [None]
  - Chest discomfort [None]
  - Pain in extremity [None]
  - Tachycardia [None]
  - Irregular breathing [None]
  - Back pain [None]

NARRATIVE: CASE EVENT DATE: 20250417
